FAERS Safety Report 5079589-8 (Version None)
Quarter: 2006Q3

REPORT INFORMATION
  Report Type: 
  Country: None (occurrence: None)
  Receive Date: 20060720
  Receipt Date: 20050823
  Transmission Date: 20061208
  Serious: Yes (Hospitalization, Other)
  Sender: FDA-Public Use
  Company Number: 2005092235

PATIENT
  Age: 82 Year
  Sex: Female

DRUGS (3)
  1. CELEBREX [Suspect]
     Indication: OSTEOARTHRITIS
     Dosage: 200 MG (200 MG, 1 IN 1 D), ORAL
     Route: 048
  2. ARICEPT [Suspect]
     Indication: AMNESIA
     Dates: start: 20050301
  3. FOSAMAX [Concomitant]

REACTIONS (7)
  - AMNESIA [None]
  - BACK PAIN [None]
  - CHEST PAIN [None]
  - FLANK PAIN [None]
  - HEADACHE [None]
  - MENTAL IMPAIRMENT [None]
  - SYNCOPE [None]
